FAERS Safety Report 6870734-8 (Version None)
Quarter: 2010Q3

REPORT INFORMATION
  Report Type: 
  Country: None (occurrence: None)
  Receive Date: 20100723
  Receipt Date: 20100713
  Transmission Date: 20110219
  Serious: Yes (Other)
  Sender: FDA-Public Use
  Company Number: US-BAYER-201027898NA

PATIENT
  Age: 26 Year
  Sex: Female

DRUGS (1)
  1. MIRENA [Suspect]
     Indication: CONTRACEPTION
     Dosage: FREQUENCY: CONTINUOUS
     Route: 015
     Dates: start: 20090301

REACTIONS (12)
  - ACNE [None]
  - BREAST TENDERNESS [None]
  - CHILLS [None]
  - DANDRUFF [None]
  - DEVICE DISLOCATION [None]
  - HOT FLUSH [None]
  - INFLUENZA LIKE ILLNESS [None]
  - MENSTRUAL DISORDER [None]
  - NERVOUSNESS [None]
  - PARANOIA [None]
  - PREGNANCY WITH CONTRACEPTIVE DEVICE [None]
  - VAGINAL HAEMORRHAGE [None]
